FAERS Safety Report 9651410 (Version 2)
Quarter: 2013Q4

REPORT INFORMATION
  Report Type: Spontaneous
  Country: US (occurrence: US)
  Receive Date: 20131029
  Receipt Date: 20131029
  Transmission Date: 20140711
  Serious: Yes (Other)
  Sender: FDA-Public Use
  Company Number: US-ASTRAZENECA-2013SE67430

PATIENT
  Age: 50 Year
  Sex: Female
  Weight: 123.4 kg

DRUGS (2)
  1. SYMBICORT [Suspect]
     Dosage: 320 MCG, BID
     Route: 055
     Dates: end: 2013
  2. DALLIREST [Concomitant]

REACTIONS (2)
  - Dysgeusia [Recovered/Resolved]
  - Dyspnoea [Recovering/Resolving]
